FAERS Safety Report 5279055-0 (Version None)
Quarter: 2007Q1

REPORT INFORMATION
  Report Type: 
  Country: None (occurrence: None)
  Receive Date: 20070328
  Receipt Date: 20060913
  Transmission Date: 20070707
  Serious: No
  Sender: FDA-Public Use
  Company Number: US-AMGEN-KDL193428

PATIENT
  Age: 31 Year
  Sex: Male

DRUGS (10)
  1. NEULASTA [Suspect]
     Indication: CHEMOTHERAPY
     Route: 058
     Dates: start: 20060401
  2. CYCLOPHOSPHAMIDE [Concomitant]
     Route: 065
  3. MESNA [Concomitant]
     Route: 065
  4. VINCRISTINE [Concomitant]
     Route: 065
  5. DOXORUBICIN HYDROCHLORIDE [Concomitant]
     Route: 065
  6. DEXAMETHASONE [Concomitant]
     Route: 065
  7. METHOTREXATE [Concomitant]
     Route: 065
  8. LEUCOVORIN CALCIUM [Concomitant]
     Route: 065
  9. CYTARABINE [Concomitant]
     Route: 065
  10. METHYLPREDNISOLONE 16MG TAB [Concomitant]
     Route: 065

REACTIONS (3)
  - NEUTROPHIL COUNT DECREASED [None]
  - PLATELET COUNT DECREASED [None]
  - THROMBOCYTOPENIA [None]
